FAERS Safety Report 21221238 (Version 1)
Quarter: 2022Q3

REPORT INFORMATION
  Report Type: Report from Study
  Country: US (occurrence: US)
  Receive Date: 20220817
  Receipt Date: 20220817
  Transmission Date: 20221027
  Serious: Yes (Other)
  Sender: FDA-Public Use
  Company Number: US-ACORDA-ACO_173001_2022

PATIENT
  Sex: Female
  Weight: 79 kg

DRUGS (22)
  1. AMPYRA [Suspect]
     Active Substance: DALFAMPRIDINE
     Indication: Multiple sclerosis
     Dosage: 10 MILLIGRAM, BID
     Route: 048
     Dates: start: 20160113, end: 202206
  2. LORAZEPAM [Suspect]
     Active Substance: LORAZEPAM
     Indication: Product used for unknown indication
     Dosage: 2 MILLIGRAM, QD, AT BEDTIME
     Route: 048
  3. LORAZEPAM [Suspect]
     Active Substance: LORAZEPAM
     Dosage: 4 MILLIGRAM, ONCE
     Route: 048
     Dates: start: 20220609
  4. BACLOFEN [Suspect]
     Active Substance: BACLOFEN
     Indication: Product used for unknown indication
     Dosage: 10 MILLIGRAM, QID
     Route: 048
  5. ACETAMINOPHEN [Concomitant]
     Active Substance: ACETAMINOPHEN
     Indication: Pain
     Dosage: 2 DOSAGE FORM (500MG), Q 8 HRS, PRN
     Route: 048
  6. DOXYCYCLINE HYCLATE [Concomitant]
     Active Substance: DOXYCYCLINE HYCLATE
     Indication: Product used for unknown indication
     Dosage: 50 MILLIGRAM, BID
     Route: 065
  7. GABAPENTIN [Concomitant]
     Active Substance: GABAPENTIN
     Indication: Product used for unknown indication
     Dosage: 300 MILLIGRAM, TID
     Route: 048
  8. LAMOTRIGINE [Concomitant]
     Active Substance: LAMOTRIGINE
     Indication: Bipolar disorder
     Dosage: 100 MILLIGRAM, QD, AT BEDTIME
     Route: 048
  9. LAMOTRIGINE [Concomitant]
     Active Substance: LAMOTRIGINE
     Dosage: 25 MILLIGRAM, QD, AT BEDTIME
     Route: 048
  10. NITROFURANTOIN MACROCRYSTALS [Concomitant]
     Active Substance: NITROFURANTOIN
     Indication: Product used for unknown indication
     Dosage: 100 MILLIGRAM, Q 12 HRS FOR 5 DAYS
     Route: 048
  11. OXYBUTYNIN CHLORIDE [Concomitant]
     Active Substance: OXYBUTYNIN CHLORIDE
     Indication: Product used for unknown indication
     Dosage: 5 MILLIGRAM, QID
     Route: 048
  12. ALBUTEROL SULFATE [Concomitant]
     Active Substance: ALBUTEROL SULFATE
     Indication: Product used for unknown indication
     Dosage: 90 MICROGRAM/ ACT AERS
     Route: 065
  13. ADAPALENE [Concomitant]
     Active Substance: ADAPALENE
     Indication: Product used for unknown indication
     Dosage: 0.3 %, ONLY TO AFFECTED AREA(S) ONCE DAILY AT BEDTIME
     Route: 065
  14. CYCLOBENZAPRINE [Concomitant]
     Active Substance: CYCLOBENZAPRINE
     Indication: Muscle spasms
     Dosage: 10 MILLIGRAM, PRN
     Route: 065
  15. NAPROXEN [Concomitant]
     Active Substance: NAPROXEN
     Indication: Pain
     Dosage: 500 MILLIGRAM, Q 12 HRS, AS NEEDED
     Route: 048
  16. CARIPRAZINE [Concomitant]
     Active Substance: CARIPRAZINE
     Indication: Bipolar disorder
     Dosage: UNKNOWN
     Route: 065
  17. PAROXETINE [Concomitant]
     Active Substance: PAROXETINE
     Indication: Bipolar disorder
     Dosage: 40 MILLIGRAM
     Route: 048
  18. GLATIRAMER [Concomitant]
     Active Substance: GLATIRAMER
     Indication: Multiple sclerosis
     Dosage: 20 MG/ML INJECTION, INJECT 20 MG UNDER THE SKIN
     Route: 065
  19. LACTATED RINGERS SOLUTION [Concomitant]
     Active Substance: CALCIUM CHLORIDE\POTASSIUM CHLORIDE\SODIUM CHLORIDE\SODIUM LACTATE
     Indication: Product used for unknown indication
     Dosage: 1000 MILLILITER
     Route: 042
     Dates: end: 20220609
  20. MAGNESIUM OXIDE [Concomitant]
     Active Substance: MAGNESIUM OXIDE
     Indication: Product used for unknown indication
     Dosage: 800 MILLIGRAM
     Route: 048
     Dates: start: 20220609
  21. DOTAREM [Concomitant]
     Active Substance: GADOTERATE MEGLUMINE
     Indication: Product used for unknown indication
     Dosage: 10 MMOL/20ML INJECTION 16 ML
     Route: 042
     Dates: end: 20220609
  22. CANNABIS SATIVA SUBSP. INDICA TOP [Concomitant]
     Active Substance: CANNABIS SATIVA SUBSP. INDICA TOP
     Indication: Product used for unknown indication
     Dosage: UNK
     Route: 065

REACTIONS (37)
  - Transient ischaemic attack [Unknown]
  - Mental status changes [Recovered/Resolved]
  - Muscle twitching [Unknown]
  - Memory impairment [Unknown]
  - Feeling abnormal [Unknown]
  - Somnolence [Unknown]
  - Aphasia [Unknown]
  - Visual impairment [Unknown]
  - Poisoning [Unknown]
  - Magnetic resonance imaging [Unknown]
  - Microcytic anaemia [Unknown]
  - Fine motor skill dysfunction [Unknown]
  - Pollakiuria [Unknown]
  - Disturbance in attention [Unknown]
  - Dysmetria [Unknown]
  - Metabolic disorder [Unknown]
  - Urine abnormality [Unknown]
  - Ketonuria [Unknown]
  - Nitrite urine [Unknown]
  - Blood urine present [Unknown]
  - Lymphocyte count decreased [Unknown]
  - Blood magnesium decreased [Unknown]
  - Haematocrit decreased [Unknown]
  - Mean cell haemoglobin decreased [Unknown]
  - Mean cell volume decreased [Unknown]
  - Blood glucose increased [Unknown]
  - Dysarthria [Unknown]
  - Red cell distribution width increased [Unknown]
  - Tremor [Unknown]
  - Fatigue [Unknown]
  - Gait disturbance [Unknown]
  - Multiple sclerosis [Unknown]
  - Confusional state [Unknown]
  - Multiple sclerosis relapse [Unknown]
  - Urinary tract infection [Unknown]
  - Dizziness [Unknown]
  - Balance disorder [Unknown]
